FAERS Safety Report 7897409-0 (Version None)
Quarter: 2011Q4

REPORT INFORMATION
  Report Type: 
  Country: None (occurrence: None)
  Receive Date: 20111107
  Receipt Date: 20111026
  Transmission Date: 20120403
  Serious: Yes (Other)
  Sender: FDA-Public Use
  Company Number: US-JNJFOC-20110502336

PATIENT
  Sex: Female
  Weight: 63.5 kg

DRUGS (2)
  1. CYCLOBENZAPRINE HYDROCHLORIDE [Suspect]
     Indication: PRODUCT USED FOR UNKNOWN INDICATION
     Route: 048
     Dates: start: 20110101
  2. FLEXERIL [Suspect]
     Indication: NECK CRUSHING
     Route: 048
     Dates: start: 19670101, end: 20110101

REACTIONS (9)
  - DRUG DISPENSING ERROR [None]
  - MALAISE [None]
  - MOVEMENT DISORDER [None]
  - EXPIRED DRUG ADMINISTERED [None]
  - WEIGHT INCREASED [None]
  - DRUG EFFECT DECREASED [None]
  - JOINT INJURY [None]
  - BASEDOW'S DISEASE [None]
  - AORTIC RUPTURE [None]
